FAERS Safety Report 18667828 (Version 2)
Quarter: 2021Q1

REPORT INFORMATION
  Report Type: Spontaneous
  Country: US (occurrence: US)
  Receive Date: 20201228
  Receipt Date: 20210204
  Transmission Date: 20210419
  Serious: No
  Sender: FDA-Public Use
  Company Number: US-SA-2020SA112324

PATIENT
  Age: 61 Year
  Sex: Male
  Weight: 83.9 kg

DRUGS (2)
  1. CEREZYME [Suspect]
     Active Substance: IMIGLUCERASE
     Indication: GAUCHER^S DISEASE
     Dosage: 5600 U, QOW
     Route: 042
     Dates: start: 20170118, end: 202004
  2. CEREZYME [Suspect]
     Active Substance: IMIGLUCERASE
     Dosage: 5600 U, QOW
     Route: 042
     Dates: start: 2020

REACTIONS (2)
  - Product dose omission issue [Unknown]
  - Weight decreased [Unknown]

NARRATIVE: CASE EVENT DATE: 20210125
